FAERS Safety Report 6011624-2 (Version None)
Quarter: 2008Q4

REPORT INFORMATION
  Report Type: 
  Country: None (occurrence: None)
  Receive Date: 20081218
  Receipt Date: 19860314
  Transmission Date: 20090506
  Serious: Yes (Death)
  Sender: FDA-Public Use
  Company Number: IT-ROCHE-860101921001

PATIENT
  Age: 79 Year
  Sex: Male

DRUGS (2)
  1. INTERFERON ALFA-2A [Suspect]
     Indication: RENAL CELL CARCINOMA
     Route: 030
     Dates: start: 19851007, end: 19851018
  2. VINBLASTINE SULFATE [Suspect]
     Indication: RENAL CELL CARCINOMA
     Route: 042
     Dates: start: 19851007, end: 19851018

REACTIONS (1)
  - DISEASE PROGRESSION [None]
